FAERS Safety Report 4972862-0 (Version None)
Quarter: 2006Q2

REPORT INFORMATION
  Report Type: 
  Country: None (occurrence: None)
  Receive Date: 20060414
  Receipt Date: 20060411
  Transmission Date: 20061013
  Serious: Yes (Other)
  Sender: FDA-Public Use
  Company Number: FR-AVENTIS-200611358FR

PATIENT
  Age: 55 Year
  Sex: Female

DRUGS (3)
  1. LOVENOX [Suspect]
     Indication: THROMBOSIS PROPHYLAXIS
     Route: 058
     Dates: start: 20060301, end: 20060411
  2. KARDEGIC [Concomitant]
     Route: 048
     Dates: start: 20060411
  3. LANZOR [Concomitant]
     Dates: start: 20060411

REACTIONS (1)
  - THROMBOCYTHAEMIA [None]
